FAERS Safety Report 23169698 (Version 1)
Quarter: 2023Q4

REPORT INFORMATION
  Report Type: Spontaneous
  Country: AT (occurrence: AT)
  Receive Date: 20231110
  Receipt Date: 20231110
  Transmission Date: 20240109
  Serious: Yes (Life-Threatening, Hospitalization, Other)
  Sender: FDA-Public Use
  Company Number: None

PATIENT
  Age: 76 Year
  Sex: Female
  Weight: 60 kg

DRUGS (17)
  1. CELLCEPT [Suspect]
     Active Substance: MYCOPHENOLATE MOFETIL
     Indication: Product used for unknown indication
     Dosage: 1 -  0 -1 - 0
     Route: 065
  2. MYCOPHENOLATE MOFETIL [Suspect]
     Active Substance: MYCOPHENOLATE MOFETIL
     Indication: Product used for unknown indication
     Dosage: 1 DF - 0  - 1 DF
     Route: 065
     Dates: start: 201905, end: 202309
  3. PROGRAF [Suspect]
     Active Substance: TACROLIMUS
     Indication: Product used for unknown indication
     Dosage: PROGRAF 1MG KPS 3-0-3-0
     Route: 065
     Dates: start: 20230908
  4. TACROLIMUS [Suspect]
     Active Substance: TACROLIMUS
     Indication: Product used for unknown indication
     Dosage: 3 - 0 - 3 -0
     Route: 065
     Dates: start: 201905, end: 20230907
  5. INSULIN ASPART [Concomitant]
     Active Substance: INSULIN ASPART
     Dosage: 13 IU - 0 - 0
  6. LYRICA [Concomitant]
     Active Substance: PREGABALIN
     Dosage: 0-1 - 0 - 2
  7. TRAZODONE HYDROCHLORIDE [Concomitant]
     Active Substance: TRAZODONE HYDROCHLORIDE
     Dosage: 0 - 0 - 0 - 1/3 DF
  8. FOLIC ACID [Concomitant]
     Active Substance: FOLIC ACID
     Dosage: 1 - 0 - 0 - 0 EVERY FRIDAY
  9. QUETIAPINE [Concomitant]
     Active Substance: QUETIAPINE
     Dosage: 0 - 0 - 1 - 0
  10. ACETAMINOPHEN [Concomitant]
     Active Substance: ACETAMINOPHEN
     Dosage: 1-1-1-0
  11. BISOPROLOL FUMARATE [Concomitant]
     Active Substance: BISOPROLOL FUMARATE
     Dosage: 0,5 - 0 - 0.5- 0
  12. AMLODIPINE [Concomitant]
     Active Substance: AMLODIPINE BESYLATE
     Dosage: 1 - 0 - 0-0
  13. BENSERAZIDE HYDROCHLORIDE\LEVODOPA [Concomitant]
     Active Substance: BENSERAZIDE HYDROCHLORIDE\LEVODOPA
     Dosage: 1 - 0 - 0 - 0
  14. PREDNISOLONE [Concomitant]
     Active Substance: PREDNISOLONE
     Dosage: 1 - 0 - 0 - 0
  15. PHENPROCOUMON [Concomitant]
     Active Substance: PHENPROCOUMON
  16. LINAGLIPTIN [Concomitant]
     Active Substance: LINAGLIPTIN
     Dosage: 1 - 0 - 0 - 0
  17. CHOLECALCIFEROL [Concomitant]
     Active Substance: CHOLECALCIFEROL
     Dosage: 40 TR - 0 - 0 - 0 EVERY FRIDAY

REACTIONS (4)
  - Abdominal pain [Recovered/Resolved]
  - Gastroduodenal ulcer [Unknown]
  - Duodenal ulcer perforation [Recovered/Resolved]
  - Acute abdomen [Recovered/Resolved]

NARRATIVE: CASE EVENT DATE: 20230919
